FAERS Safety Report 7177167-8 (Version None)
Quarter: 2010Q4

REPORT INFORMATION
  Report Type: 
  Country: None (occurrence: None)
  Receive Date: 20101220
  Receipt Date: 20101208
  Transmission Date: 20110411
  Serious: Yes (Other)
  Sender: FDA-Public Use
  Company Number: US-SANOFI-AVENTIS-2010SA074829

PATIENT
  Age: 65 Year
  Sex: Female

DRUGS (2)
  1. MULTAQ [Suspect]
     Route: 048
  2. COUMADIN [Suspect]
     Route: 065

REACTIONS (1)
  - INTERNATIONAL NORMALISED RATIO INCREASED [None]
